FAERS Safety Report 24214525 (Version 1)
Quarter: 2024Q3

REPORT INFORMATION
  Report Type: Spontaneous
  Country: US (occurrence: US)
  Receive Date: 20240815
  Receipt Date: 20240815
  Transmission Date: 20241017
  Serious: Yes (Other)
  Sender: TEVA
  Company Number: US-TEVA-VS-3230756

PATIENT
  Age: 73 Year
  Sex: Female

DRUGS (3)
  1. ACITRETIN [Suspect]
     Active Substance: ACITRETIN
     Indication: Rash pustular
     Route: 065
  2. ISOTRETINOIN [Suspect]
     Active Substance: ISOTRETINOIN
     Indication: Drug eruption
     Route: 065
  3. AMIVANTAMAB [Suspect]
     Active Substance: AMIVANTAMAB
     Indication: Small cell lung cancer
     Route: 065

REACTIONS (5)
  - Rash pustular [Recovering/Resolving]
  - Therapy non-responder [Unknown]
  - Skin erosion [Recovering/Resolving]
  - Dermatitis [Recovering/Resolving]
  - Staphylococcal infection [Unknown]
